FAERS Safety Report 7018556-1 (Version None)
Quarter: 2010Q3

REPORT INFORMATION
  Report Type: 
  Country: None (occurrence: None)
  Receive Date: 20100928
  Receipt Date: 20100914
  Transmission Date: 20110219
  Serious: Yes (Other)
  Sender: FDA-Public Use
  Company Number: GB-JNJFOC-20100907232

PATIENT
  Age: 90 Year
  Sex: Female
  Weight: 51 kg

DRUGS (10)
  1. TRAMADOL HYDROCHLORIDE [Suspect]
     Indication: PELVIC FRACTURE
     Route: 048
  2. TRAMADOL HYDROCHLORIDE [Suspect]
     Route: 048
  3. ALENDRONATE SODIUM [Concomitant]
  4. ASPIRIN [Concomitant]
  5. CALCIUM CARBONATE W/COLECALCIFEROL [Concomitant]
  6. OMEPRAZOLE [Concomitant]
  7. PARACETAMOL [Concomitant]
  8. PREDNISOLONE [Concomitant]
  9. RAMIPRIL [Concomitant]
  10. SIMVASTATIN [Concomitant]

REACTIONS (2)
  - MYOCLONUS [None]
  - WITHDRAWAL SYNDROME [None]
